FAERS Safety Report 13517756 (Version 2)
Quarter: 2017Q2

REPORT INFORMATION
  Report Type: Spontaneous
  Country: FR (occurrence: FR)
  Receive Date: 20170505
  Receipt Date: 20170511
  Transmission Date: 20170830
  Serious: Yes (Death)
  Sender: FDA-Public Use
  Company Number: FR-BIO-PHARM, INC -2020256

PATIENT

DRUGS (1)
  1. CETIRIZINE HYDROCHLORIDE. [Suspect]
     Active Substance: CETIRIZINE HYDROCHLORIDE

REACTIONS (19)
  - Reye^s syndrome [None]
  - Cerebral artery embolism [None]
  - Speech disorder [None]
  - Impaired gastric emptying [None]
  - Respiratory failure [None]
  - Dyspnoea [None]
  - Botulism [None]
  - Aspiration [None]
  - Asthenia [None]
  - Lethargy [None]
  - Muscular weakness [None]
  - Cardio-respiratory arrest [None]
  - Cardiac arrest [None]
  - Deep vein thrombosis [None]
  - Dysphagia [None]
  - Intestinal ischaemia [None]
  - Toxicity to various agents [Fatal]
  - Pneumonia [None]
  - Seizure [None]
